FAERS Safety Report 11896165 (Version 1)
Quarter: 2016Q1

REPORT INFORMATION
  Report Type: Spontaneous
  Country: US (occurrence: US)
  Receive Date: 20160107
  Receipt Date: 20160107
  Transmission Date: 20160526
  Serious: Yes (Hospitalization)
  Sender: FDA-Public Use
  Company Number: US-ROCHE-1437721

PATIENT
  Age: 70 Year
  Sex: Female

DRUGS (1)
  1. RITUXAN [Suspect]
     Active Substance: RITUXIMAB
     Indication: NON-HODGKIN^S LYMPHOMA
     Route: 042

REACTIONS (6)
  - Lip swelling [Unknown]
  - Pharyngeal oedema [Unknown]
  - Pyrexia [Unknown]
  - Mouth swelling [Unknown]
  - Sepsis [Unknown]
  - Hypotension [Unknown]

NARRATIVE: CASE EVENT DATE: 20140715
